FAERS Safety Report 20877346 (Version 1)
Quarter: 2022Q2

REPORT INFORMATION
  Report Type: Spontaneous
  Country: US (occurrence: None)
  Receive Date: 20220526
  Receipt Date: 20220526
  Transmission Date: 20220721
  Serious: No
  Sender: FDA-Public Use
  Company Number: None

PATIENT
  Age: 35 Year
  Sex: Female

DRUGS (1)
  1. ENVARSUS XR [Suspect]
     Active Substance: TACROLIMUS
     Dosage: FREQUENCY : DAILY;?
     Route: 048

REACTIONS (1)
  - Sepsis [None]

NARRATIVE: CASE EVENT DATE: 20220517
